FAERS Safety Report 5226194-6 (Version None)
Quarter: 2007Q1

REPORT INFORMATION
  Report Type: 
  Country: None (occurrence: None)
  Receive Date: 20070201
  Receipt Date: 20070123
  Transmission Date: 20070707
  Serious: Yes (Hospitalization)
  Sender: FDA-Public Use
  Company Number: DE-ROCHE-478230

PATIENT
  Age: 64 Year
  Sex: Male
  Weight: 88 kg

DRUGS (4)
  1. CELLCEPT [Suspect]
     Indication: HEART TRANSPLANT
     Route: 048
     Dates: start: 20050615
  2. SANDIMMUNE [Concomitant]
  3. CARBAMAZEPINE [Concomitant]
  4. 1 CONCOMITANT DRUG [Concomitant]
     Dosage: REPORTED AS ^OTHER MEDICATION, NOS^

REACTIONS (2)
  - COORDINATION ABNORMAL [None]
  - ENCEPHALOPATHY [None]
